FAERS Safety Report 6969234-6 (Version None)
Quarter: 2010Q3

REPORT INFORMATION
  Report Type: 
  Country: None (occurrence: None)
  Receive Date: 20100907
  Receipt Date: 20100827
  Transmission Date: 20110219
  Serious: Yes (Hospitalization)
  Sender: FDA-Public Use
  Company Number: DE-WYE-H17207310

PATIENT
  Age: 69 Year
  Sex: Female

DRUGS (2)
  1. PANTOPRAZOLE SODIUM [Suspect]
     Indication: PROPHYLAXIS AGAINST GASTROINTESTINAL ULCER
     Route: 048
     Dates: start: 20100501, end: 20100801
  2. DECORTIN [Concomitant]
     Dosage: UNKNOWN

REACTIONS (2)
  - ACUTE HEPATIC FAILURE [None]
  - RENAL FAILURE ACUTE [None]
